FAERS Safety Report 4273312-2 (Version None)
Quarter: 2004Q1

REPORT INFORMATION
  Report Type: 
  Country: None (occurrence: None)
  Receive Date: 20040115
  Receipt Date: 20040115
  Transmission Date: 20041129
  Serious: Yes (Hospitalization)
  Sender: FDA-Public Use
  Company Number: None

PATIENT
  Age: 34 Year
  Sex: Female
  Weight: 53 kg

DRUGS (8)
  1. CPT-11 125 MG/M2 = 191 MG 2 WK ON ONE WK OFF [Suspect]
     Indication: COLON CANCER METASTATIC
     Dosage: 191 MG IV 11/6 + 11/13
     Route: 042
     Dates: start: 20031106
  2. CPT-11 125 MG/M2 = 191 MG 2 WK ON ONE WK OFF [Suspect]
     Indication: COLON CANCER METASTATIC
     Dosage: 191 MG IV 11/6 + 11/13
     Route: 042
     Dates: start: 20031113
  3. EXISULIND 200 MG PO BID [Suspect]
     Indication: COLON CANCER METASTATIC
     Dosage: 200 MG PO BID
     Route: 048
     Dates: start: 20031106, end: 20031126
  4. PROZAC [Concomitant]
  5. OXYCONTIN [Concomitant]
  6. AMBIEN [Concomitant]
  7. OXYCODONE HCL [Concomitant]
  8. PERI-COLACE [Concomitant]

REACTIONS (3)
  - DISEASE PROGRESSION [None]
  - HYDRONEPHROSIS [None]
  - UROSEPSIS [None]
